FAERS Safety Report 24726671 (Version 2)
Quarter: 2024Q4

REPORT INFORMATION
  Report Type: Spontaneous
  Country: DK (occurrence: DK)
  Receive Date: 20241212
  Receipt Date: 20241230
  Transmission Date: 20250114
  Serious: Yes (Hospitalization, Other)
  Sender: MYLAN
  Company Number: DK-ORESUND-24OPAZA0578P

PATIENT
  Age: 76 Year
  Sex: Female

DRUGS (5)
  1. ZOLEDRONIC ACID [Suspect]
     Active Substance: ZOLEDRONIC ACID
     Indication: Osteoporosis
     Dosage: 5 MILLIGRAM, QY (ANNUAL 5 MG DOSE OF INTRAVENOUS ZOLEDRONIC ACID
     Route: 042
     Dates: start: 2019, end: 2019
  2. CEFUROXIME [Concomitant]
     Active Substance: CEFUROXIME
     Indication: Staphylococcal infection
     Dosage: UNK
     Route: 042
  3. CEFUROXIME [Concomitant]
     Active Substance: CEFUROXIME
     Indication: Bacterial infection
  4. CIPROFLOXACIN [Concomitant]
     Active Substance: CIPROFLOXACIN
     Indication: Staphylococcal infection
     Dosage: UNK
     Route: 048
  5. CIPROFLOXACIN [Concomitant]
     Active Substance: CIPROFLOXACIN
     Indication: Bacterial infection

REACTIONS (15)
  - Condition aggravated [Recovering/Resolving]
  - Hyperkalaemia [Unknown]
  - Oliguria [Unknown]
  - Metabolic acidosis [Unknown]
  - White blood cell count increased [Unknown]
  - Staphylococcal infection [Unknown]
  - Proteus test positive [Unknown]
  - Haemodialysis [Recovered/Resolved]
  - Urinary incontinence [Recovered/Resolved]
  - Bladder catheterisation [Recovered/Resolved]
  - Nausea [Unknown]
  - Vomiting [Unknown]
  - C-reactive protein increased [Unknown]
  - Proteinuria [Unknown]
  - Malaise [Unknown]
